FAERS Safety Report 12318408 (Version 2)
Quarter: 2016Q2

REPORT INFORMATION
  Report Type: Spontaneous
  Country: US (occurrence: US)
  Receive Date: 20160429
  Receipt Date: 20160609
  Transmission Date: 20160815
  Serious: No
  Sender: FDA-Public Use
  Company Number: US-PFIZER INC-2016201338

PATIENT
  Age: 49 Year
  Sex: Female
  Weight: 86.17 kg

DRUGS (1)
  1. RELPAX [Suspect]
     Active Substance: ELETRIPTAN HYDROBROMIDE
     Indication: HEADACHE
     Dosage: 40 MG, UNK (MAY REPEAT IN 2 HOURS. MAX 2 TABS PER 24 HRS)
     Route: 048

REACTIONS (10)
  - Dizziness [Unknown]
  - Phonophobia [Unknown]
  - Aura [Unknown]
  - Vomiting [Unknown]
  - Drug effect incomplete [Unknown]
  - Vision blurred [Unknown]
  - Photophobia [Unknown]
  - Nausea [Unknown]
  - Neck pain [Unknown]
  - Muscular weakness [Unknown]
